FAERS Safety Report 10722992 (Version 1)
Quarter: 2015Q1

REPORT INFORMATION
  Report Type: Spontaneous
  Country: GB (occurrence: None)
  Receive Date: 20150114
  Receipt Date: 20150114
  Transmission Date: 20150721
  Serious: Yes (Hospitalization)
  Sender: FDA-Public Use
  Company Number: GB-H14001-15-00022

PATIENT
  Age: 85 Year
  Sex: Male

DRUGS (12)
  1. NEORECORMON (EPOETIN BETA) [Concomitant]
  2. BUMETANIDE. [Concomitant]
     Active Substance: BUMETANIDE
  3. CO-DYDRAMOL (PARAMOL-118) (UNKNOWN) (PARACETAMOL, DIHYDROCOEINE BITARTRATE) [Concomitant]
  4. CO-AMOXICLAV [Suspect]
     Active Substance: AMOXICILLIN\CLAVULANIC ACID
     Indication: URINARY TRACT INFECTION
     Dosage: 1125 MG (375 MG, 3 IN 1 DAY)
     Route: 048
     Dates: start: 200503, end: 200503
  5. SENNA [Concomitant]
     Active Substance: SENNA LEAF\SENNOSIDES\SENNOSIDES A AND B
  6. SEVELAMER [Concomitant]
     Active Substance: SEVELAMER
  7. WARFARIN [Concomitant]
     Active Substance: WARFARIN
  8. ASPIRINE (ACETYLSALICYLIC ACID) [Concomitant]
  9. SODIUM BICARBONATE. [Concomitant]
     Active Substance: SODIUM BICARBONATE
  10. TRIMETHOPRIM (TRIMETHOPRIM) [Suspect]
     Active Substance: TRIMETHOPRIM
     Indication: URINARY TRACT INFECTION
     Dosage: 400 MG (200 MG, 2 IN 1 D)
     Route: 048
     Dates: start: 200503, end: 200503
  11. OXYBUTYNIN [Concomitant]
     Active Substance: OXYBUTYNIN
  12. NEBIVOLOL [Concomitant]
     Active Substance: NEBIVOLOL

REACTIONS (6)
  - Malaise [None]
  - Haematochezia [None]
  - Blood creatinine increased [None]
  - International normalised ratio increased [None]
  - Melaena [None]
  - Urine analysis abnormal [None]

NARRATIVE: CASE EVENT DATE: 200504
